FAERS Safety Report 14629015 (Version 4)
Quarter: 2018Q2

REPORT INFORMATION
  Report Type: Report from Study
  Country: US (occurrence: US)
  Receive Date: 20180313
  Receipt Date: 20180423
  Transmission Date: 20180711
  Serious: Yes (Hospitalization)
  Sender: FDA-Public Use
  Company Number: US-ROCHE-2082089

PATIENT
  Age: 39 Year
  Sex: Male
  Weight: 98.2 kg

DRUGS (31)
  1. OCRELIZUMAB. [Suspect]
     Active Substance: OCRELIZUMAB
     Dosage: OLE-WEEK 48 CYCLE 7
     Route: 042
     Dates: start: 20150812, end: 20150812
  2. OCRELIZUMAB. [Suspect]
     Active Substance: OCRELIZUMAB
     Dosage: OLE-WEEK 72, CYCLE 8
     Route: 042
     Dates: start: 20160202, end: 20160202
  3. METHYLPREDNISOLONE. [Concomitant]
     Active Substance: METHYLPREDNISOLONE
     Dosage: 31/OCT/2012, 03/APR/2013, 18/SEP/2013, 05/MAR/2014, 08/SEP/2014, 23/SEP/2014, 23/FEB/2015, 12/AUG/20
     Route: 065
  4. PREDNISONE. [Concomitant]
     Active Substance: PREDNISONE
     Route: 065
     Dates: start: 20141204
  5. PSEUDOEPHEDRINE [Concomitant]
     Active Substance: PSEUDOEPHEDRINE
     Route: 065
     Dates: start: 20180213
  6. TAMIFLU [Concomitant]
     Active Substance: OSELTAMIVIR PHOSPHATE
     Route: 065
     Dates: start: 20180221
  7. OCRELIZUMAB. [Suspect]
     Active Substance: OCRELIZUMAB
     Dosage: CYCLE 2 WEEK 24
     Route: 042
     Dates: start: 20130403, end: 20130403
  8. OCRELIZUMAB. [Suspect]
     Active Substance: OCRELIZUMAB
     Dosage: CYCLE 3 WEEK 48
     Route: 042
     Dates: start: 20130918, end: 20130918
  9. OCRELIZUMAB. [Suspect]
     Active Substance: OCRELIZUMAB
     Dosage: OLE-WEEK 24, CYCLE 6
     Route: 042
     Dates: start: 20150223, end: 20150223
  10. ZOFRAN [Concomitant]
     Active Substance: ONDANSETRON HYDROCHLORIDE
     Route: 065
     Dates: start: 20180221, end: 20180228
  11. OCRELIZUMAB. [Suspect]
     Active Substance: OCRELIZUMAB
     Dosage: OLE-WEEK 144, CYCLE 11
     Route: 042
     Dates: start: 20170614, end: 20170614
  12. BENADRYL [Concomitant]
     Active Substance: DIPHENHYDRAMINE HYDROCHLORIDE
     Dosage: 31/OCT/2012, 03/APR/2013, 18/SEP/2013, 05/MAR/2014, 08/SEP/2014, 23/SEP/2014, 23/FEB/2015, 12/AUG/20
     Route: 065
     Dates: start: 20121018
  13. IBUPROFEN. [Concomitant]
     Active Substance: IBUPROFEN
     Route: 065
     Dates: start: 20170811, end: 20170824
  14. PLACEBO [Suspect]
     Active Substance: UNSPECIFIED INGREDIENT
     Indication: RELAPSING-REMITTING MULTIPLE SCLEROSIS
     Dosage: LAST DOSE PRIOR TO SAE: 08/SEP/2014
     Route: 058
     Dates: start: 20121018
  15. OCRELIZUMAB. [Suspect]
     Active Substance: OCRELIZUMAB
     Dosage: OLE-WEEK 96, CYCLE 9
     Route: 042
     Dates: start: 20160708, end: 20160708
  16. OCRELIZUMAB. [Suspect]
     Active Substance: OCRELIZUMAB
     Dosage: OLE-WEEK 120, CYCLE 10
     Route: 042
     Dates: start: 20161222, end: 20161222
  17. OCRELIZUMAB. [Suspect]
     Active Substance: OCRELIZUMAB
     Dosage: OLE-WEEK 168, CYCLE 12
     Route: 042
     Dates: start: 20171213, end: 20171213
  18. MOBIC [Concomitant]
     Active Substance: MELOXICAM
     Route: 065
     Dates: start: 20141204
  19. OCRELIZUMAB. [Suspect]
     Active Substance: OCRELIZUMAB
     Indication: RELAPSING-REMITTING MULTIPLE SCLEROSIS
     Dosage: DAY 1 CYCLE 1 WEEK 1?DUAL INFUSIONS ON DAYS 1 AND 15 FOR THE FIRST DOSE AND AS A SINGLE INFUSION FOR
     Route: 042
     Dates: start: 20121018, end: 20121018
  20. OCRELIZUMAB. [Suspect]
     Active Substance: OCRELIZUMAB
     Dosage: DAY 15 CYCLE 5, WEEK 2
     Route: 042
     Dates: start: 20140923, end: 20140923
  21. MELOXICAM. [Concomitant]
     Active Substance: MELOXICAM
     Route: 065
     Dates: start: 20130915
  22. IBUPROFEN. [Concomitant]
     Active Substance: IBUPROFEN
     Route: 065
     Dates: start: 20171128, end: 20171201
  23. IBUPROFEN. [Concomitant]
     Active Substance: IBUPROFEN
     Route: 065
     Dates: start: 20180213
  24. OCRELIZUMAB. [Suspect]
     Active Substance: OCRELIZUMAB
     Dosage: CYCLE 4 WEEK 72
     Route: 042
     Dates: start: 20140305, end: 20140305
  25. PLACEBO [Suspect]
     Active Substance: UNSPECIFIED INGREDIENT
     Dosage: MOST RECENT DOSE PRIOR TO SAE: 08/SEP/2014
     Route: 058
     Dates: start: 20140820
  26. BENADRYL [Concomitant]
     Active Substance: DIPHENHYDRAMINE HYDROCHLORIDE
     Route: 065
     Dates: start: 20121018, end: 20121018
  27. PHYSICAL THERAPY [Concomitant]
     Dosage: (ROTATOR CUFF)
     Route: 065
     Dates: start: 201309
  28. IBUPROFEN. [Concomitant]
     Active Substance: IBUPROFEN
     Route: 065
     Dates: start: 20161212
  29. OCRELIZUMAB. [Suspect]
     Active Substance: OCRELIZUMAB
     Dosage: DAY 15 CYCLE 1 WEEK 2
     Route: 042
     Dates: start: 20121031, end: 20121031
  30. OCRELIZUMAB. [Suspect]
     Active Substance: OCRELIZUMAB
     Indication: RELAPSING-REMITTING MULTIPLE SCLEROSIS
     Dosage: DAY 1 CYCLE 5, WEEK 1?600 MG INTRAVENOUS (IV) AS 300 MG INFUSIONS ON DAYS 1 AND 15 FOR THE FIRST DOS
     Route: 042
     Dates: start: 20140908, end: 20140908
  31. BENADRYL [Concomitant]
     Active Substance: DIPHENHYDRAMINE HYDROCHLORIDE
     Route: 065
     Dates: start: 20130403, end: 20130403

REACTIONS (1)
  - Atrial fibrillation [Recovered/Resolved]

NARRATIVE: CASE EVENT DATE: 20180223
